FAERS Safety Report 8176052-2 (Version None)
Quarter: 2012Q1

REPORT INFORMATION
  Report Type: 
  Country: None (occurrence: None)
  Receive Date: 20120301
  Receipt Date: 20120228
  Transmission Date: 20120608
  Serious: No
  Sender: FDA-Public Use
  Company Number: US-PFIZER INC-2012052946

PATIENT
  Sex: Female
  Weight: 93.424 kg

DRUGS (6)
  1. LIPITOR [Concomitant]
     Dosage: UNK
  2. GLUCOTROL XL [Concomitant]
     Indication: DIABETES MELLITUS
     Dosage: UNK
  3. NEURONTIN [Suspect]
     Indication: NEUROPATHY PERIPHERAL
     Dosage: 300 MG, 1X/DAY
     Dates: start: 20091001, end: 20091001
  4. NEURONTIN [Suspect]
     Dosage: 600 MG, 1X/DAY
     Dates: start: 20091001, end: 20091001
  5. METFORMIN [Concomitant]
     Indication: DIABETES MELLITUS
     Dosage: UNK
  6. NEURONTIN [Suspect]
     Dosage: 900 MG, 1X/DAY
     Dates: start: 20091001

REACTIONS (1)
  - PAIN [None]
